FAERS Safety Report 5716466-0 (Version None)
Quarter: 2008Q2

REPORT INFORMATION
  Report Type: 
  Country: None (occurrence: None)
  Receive Date: 20080424
  Receipt Date: 20080416
  Transmission Date: 20081010
  Serious: Yes (Hospitalization)
  Sender: FDA-Public Use
  Company Number: BE-ABBOTT-08P-013-0440606-00

PATIENT
  Sex: Male
  Weight: 89 kg

DRUGS (1)
  1. KALETRA [Suspect]
     Indication: HIV INFECTION
     Dates: start: 20071229

REACTIONS (9)
  - ANOREXIA [None]
  - BACK PAIN [None]
  - CHILLS [None]
  - DIARRHOEA [None]
  - HEADACHE [None]
  - PSOAS ABSCESS [None]
  - PYREXIA [None]
  - VOMITING [None]
  - WEIGHT DECREASED [None]
